FAERS Safety Report 7706329-3 (Version None)
Quarter: 2011Q3

REPORT INFORMATION
  Report Type: 
  Country: None (occurrence: None)
  Receive Date: 20110824
  Receipt Date: 20110816
  Transmission Date: 20111222
  Serious: Yes (Hospitalization)
  Sender: FDA-Public Use
  Company Number: DE-JNJFOC-20110807536

PATIENT
  Age: 25 Year
  Sex: Female

DRUGS (2)
  1. LEFLUNOMIDE [Concomitant]
  2. REMICADE [Suspect]
     Indication: RHEUMATOID ARTHRITIS
     Route: 042
     Dates: start: 20100601, end: 20100801

REACTIONS (1)
  - ECZEMA NUMMULAR [None]
